FAERS Safety Report 18371348 (Version 1)
Quarter: 2020Q4

REPORT INFORMATION
  Report Type: Spontaneous
  Country: US (occurrence: US)
  Receive Date: 20201012
  Receipt Date: 20201012
  Transmission Date: 20210114
  Serious: No
  Sender: FDA-Public Use
  Company Number: US-BLUEPRINT MEDICINES CORPORATION-SP-US-2020-001088

PATIENT
  Sex: Male

DRUGS (1)
  1. GAVRETO [Suspect]
     Active Substance: PRALSETINIB
     Indication: NON-SMALL CELL LUNG CANCER
     Route: 048
     Dates: start: 20200923

REACTIONS (7)
  - Dysuria [Unknown]
  - Asthenia [Unknown]
  - Constipation [Unknown]
  - Agitation [Unknown]
  - Depression [Unknown]
  - Confusional state [Unknown]
  - Anxiety [Unknown]
